FAERS Safety Report 19431657 (Version 1)
Quarter: 2021Q2

REPORT INFORMATION
  Report Type: Spontaneous
  Country: FR (occurrence: FR)
  Receive Date: 20210618
  Receipt Date: 20210618
  Transmission Date: 20210717
  Serious: Yes (Other)
  Sender: FDA-Public Use
  Company Number: FR-AUROBINDO-AUR-APL-2021-024679

PATIENT
  Sex: Male
  Weight: 51 kg

DRUGS (6)
  1. LYSAKARE [Suspect]
     Active Substance: ARGININE\LYSINE
     Indication: RENAL DISORDER PROPHYLAXIS
     Dosage: 1 LITER (25/25 G)
     Route: 042
     Dates: start: 20210406, end: 20210406
  2. SOMATULINE LP [Concomitant]
     Active Substance: LANREOTIDE ACETATE
     Indication: PRODUCT USED FOR UNKNOWN INDICATION
     Dosage: 120 MILLIGRAM, EVERY 15 DAYS (SLOW RELEASE)
     Route: 058
  3. ONDANSETRON [Suspect]
     Active Substance: ONDANSETRON
     Indication: VESTIBULAR NEURONITIS
     Dosage: 32 MILLIGRAM, ONCE A DAY (8 MG, ONCE A DAY)
     Route: 042
     Dates: start: 20210406, end: 20210406
  4. LUTATHERA [Suspect]
     Active Substance: LUTETIUM OXODOTREOTIDE LU-177
     Indication: NEUROENDOCRINE TUMOUR
     Dosage: 3668 MEGABECQUEREL, (1TOTAL)(HALF DOSE), ONCE/SINGLE
     Route: 042
     Dates: start: 20210406, end: 20210406
  5. CREON [Concomitant]
     Active Substance: PANCRELIPASE AMYLASE\PANCRELIPASE LIPASE\PANCRELIPASE PROTEASE
     Indication: PRODUCT USED FOR UNKNOWN INDICATION
     Dosage: 10500 MICROLITER, ONCE A DAY(2 X 3500 UL, TID )
     Route: 048
  6. AMLODIPINE [Concomitant]
     Active Substance: AMLODIPINE BESYLATE
     Indication: PRODUCT USED FOR UNKNOWN INDICATION
     Dosage: 10 MILLIGRAM, ONCE A DAY (EVERY MORNING)
     Route: 048

REACTIONS (2)
  - Incorrect dose administered [Recovered/Resolved]
  - Chronic kidney disease [Not Recovered/Not Resolved]

NARRATIVE: CASE EVENT DATE: 20210406
